FAERS Safety Report 6368834-4 (Version None)
Quarter: 2009Q3

REPORT INFORMATION
  Report Type: 
  Country: None (occurrence: None)
  Receive Date: 20090918
  Receipt Date: 20090918
  Transmission Date: 20100115
  Serious: No
  Sender: FDA-Public Use
  Company Number: None

PATIENT
  Age: 51 Year
  Sex: Female
  Weight: 74.8435 kg

DRUGS (1)
  1. RISPERDAL [Suspect]
     Indication: PSYCHOTIC DISORDER
     Dosage: 2MG - 1 TAB TWICE DAILY MOUTH
     Route: 048
     Dates: start: 20090630, end: 20090825

REACTIONS (14)
  - BURNING SENSATION [None]
  - COUGH [None]
  - GINGIVAL RECESSION [None]
  - GLOSSODYNIA [None]
  - HEADACHE [None]
  - MOVEMENT DISORDER [None]
  - MUSCLE RIGIDITY [None]
  - MUSCULOSKELETAL PAIN [None]
  - NEURALGIA [None]
  - ORAL DISORDER [None]
  - ORAL PAIN [None]
  - PAIN IN EXTREMITY [None]
  - PARAESTHESIA ORAL [None]
  - TACHYCARDIA [None]
